FAERS Safety Report 6275697-4 (Version None)
Quarter: 2009Q3

REPORT INFORMATION
  Report Type: 
  Country: None (occurrence: None)
  Receive Date: 20090721
  Receipt Date: 20090709
  Transmission Date: 20100115
  Serious: Yes (Other)
  Sender: FDA-Public Use
  Company Number: PHEH2009US07363

PATIENT
  Age: 87 Year
  Sex: Female

DRUGS (1)
  1. RECLAST [Suspect]
     Indication: OSTEOPOROSIS
     Dosage: UNK
     Dates: start: 20080818

REACTIONS (3)
  - ARTIFICIAL CROWN PROCEDURE [None]
  - TOOTH EXTRACTION [None]
  - TOOTH INFECTION [None]
